FAERS Safety Report 25616787 (Version 1)
Quarter: 2025Q3

REPORT INFORMATION
  Report Type: Report from Study
  Country: BD (occurrence: BD)
  Receive Date: 20250729
  Receipt Date: 20250729
  Transmission Date: 20251020
  Serious: Yes (Other)
  Sender: ROCHE
  Company Number: BD-ROCHE-10000345857

PATIENT
  Age: 71 Year
  Sex: Male

DRUGS (8)
  1. TECENTRIQ [Suspect]
     Active Substance: ATEZOLIZUMAB
     Indication: Hepatocellular carcinoma
     Route: 065
  2. TECENTRIQ [Suspect]
     Active Substance: ATEZOLIZUMAB
     Route: 065
  3. AVASTIN [Suspect]
     Active Substance: BEVACIZUMAB
     Indication: Hepatocellular carcinoma
     Route: 065
  4. cavapro [Concomitant]
  5. INSULIN NOS [Concomitant]
     Active Substance: INSULIN NOS
  6. SODIUM CHLORIDE [Concomitant]
     Active Substance: SODIUM CHLORIDE
  7. rabe 20 [Concomitant]
  8. Cef 3 [Concomitant]

REACTIONS (17)
  - Neoplasm [Unknown]
  - Tumour thrombosis [Unknown]
  - Metastases to lymph nodes [Unknown]
  - Metastases to bone [Unknown]
  - Haemoglobin decreased [Unknown]
  - Platelet count decreased [Unknown]
  - Red blood cell count decreased [Unknown]
  - Blood bilirubin increased [Unknown]
  - Aspartate aminotransferase increased [Unknown]
  - Blood alkaline phosphatase increased [Unknown]
  - Blood albumin decreased [Unknown]
  - Weight decreased [Unknown]
  - Asthenia [Unknown]
  - Dysphonia [Unknown]
  - Alpha 1 foetoprotein increased [Unknown]
  - Protein induced by vitamin K absence or antagonist II increased [Unknown]
  - Blood chloride increased [Unknown]
